FAERS Safety Report 4533818-5 (Version None)
Quarter: 2004Q4

REPORT INFORMATION
  Report Type: 
  Country: None (occurrence: None)
  Receive Date: 20041221
  Receipt Date: 20030605
  Transmission Date: 20050328
  Serious: Yes (Disabling)
  Sender: FDA-Public Use
  Company Number: US-MERCK-0306USA00865

PATIENT
  Age: 56 Year
  Sex: Male

DRUGS (4)
  1. VIOXX [Suspect]
     Indication: MONARTHRITIS
     Route: 048
     Dates: start: 20000101
  2. VIOXX [Suspect]
     Route: 048
     Dates: start: 20030701
  3. VIOXX [Suspect]
     Indication: ARTHRALGIA
     Route: 048
     Dates: start: 20000101
  4. VIOXX [Suspect]
     Route: 048
     Dates: start: 20030701

REACTIONS (28)
  - ARTHRALGIA [None]
  - BLOOD PRESSURE INCREASED [None]
  - CHEST DISCOMFORT [None]
  - CHEST PAIN [None]
  - CHRONIC SINUSITIS [None]
  - DEPRESSION [None]
  - DIABETES MELLITUS [None]
  - DYSPNOEA [None]
  - EFFUSION [None]
  - EXCORIATION [None]
  - EYE HAEMORRHAGE [None]
  - EYE PAIN [None]
  - EYE REDNESS [None]
  - HEADACHE [None]
  - HYPERLIPIDAEMIA [None]
  - JOINT EFFUSION [None]
  - MALIGNANT MELANOMA [None]
  - MUSCLE STRAIN [None]
  - OSTEOARTHRITIS [None]
  - PAIN [None]
  - PHARYNGOLARYNGEAL PAIN [None]
  - SKIN LESION [None]
  - SUPERFICIAL INJURY OF EYE [None]
  - THIRST [None]
  - TREATMENT NONCOMPLIANCE [None]
  - VISION BLURRED [None]
  - VISUAL DISTURBANCE [None]
  - WEIGHT INCREASED [None]
